FAERS Safety Report 8536652-4 (Version None)
Quarter: 2012Q3

REPORT INFORMATION
  Report Type: 
  Country: None (occurrence: None)
  Receive Date: 20120725
  Receipt Date: 20120713
  Transmission Date: 20120928
  Serious: Yes (Death)
  Sender: FDA-Public Use
  Company Number: US-ROCHE-1084653

PATIENT
  Sex: Female

DRUGS (6)
  1. AVASTIN [Suspect]
     Indication: COLORECTAL CANCER METASTATIC
     Dosage: INDICATION REPORTED AS STAGE 4 MCRC
     Dates: start: 20070101
  2. LEUCOVORIN CALCIUM [Concomitant]
     Indication: COLORECTAL CANCER METASTATIC
  3. FLUOROURACIL [Concomitant]
     Indication: COLORECTAL CANCER METASTATIC
  4. AVASTIN [Suspect]
     Dates: start: 20100101
  5. IRINOTECAN HYDROCHLORIDE [Concomitant]
     Indication: COLORECTAL CANCER METASTATIC
  6. OXALIPLATIN [Concomitant]
     Indication: COLORECTAL CANCER METASTATIC

REACTIONS (4)
  - DEATH [None]
  - PRODUCT QUALITY ISSUE [None]
  - LUNG NEOPLASM [None]
  - METASTASES TO LIVER [None]
